FAERS Safety Report 8016034-4 (Version None)
Quarter: 2011Q4

REPORT INFORMATION
  Report Type: 
  Country: None (occurrence: None)
  Receive Date: 20111230
  Receipt Date: 20111230
  Transmission Date: 20120403
  Serious: No
  Sender: FDA-Public Use
  Company Number: None

PATIENT
  Age: 49 Year
  Sex: Male

DRUGS (2)
  1. ZITHROMAX [Suspect]
     Indication: EAR INFECTION
     Dosage: 2 QD X1DAY, 1 QD X4DAY
     Route: 048
     Dates: start: 20111225, end: 20111229
  2. ZITHROMAX [Concomitant]

REACTIONS (3)
  - TREMOR [None]
  - BOWEL MOVEMENT IRREGULARITY [None]
  - FEELING ABNORMAL [None]
